FAERS Safety Report 6741408-9 (Version None)
Quarter: 2010Q2

REPORT INFORMATION
  Report Type: 
  Country: None (occurrence: None)
  Receive Date: 20100524
  Receipt Date: 20100507
  Transmission Date: 20101027
  Serious: Yes (Hospitalization)
  Sender: FDA-Public Use
  Company Number: 2010-1537

PATIENT
  Age: 25 Year
  Sex: Female

DRUGS (1)
  1. SOMATULINE DEPOT [Suspect]
     Indication: INSULINOMA
     Dosage: 120 MG (120 MG, 1 IN 28 D), SUBCUTANEOUS
     Route: 058
     Dates: start: 20100501

REACTIONS (4)
  - BLOOD ALKALINE PHOSPHATASE INCREASED [None]
  - OFF LABEL USE [None]
  - PANCREATITIS [None]
  - TRANSAMINASES INCREASED [None]
